FAERS Safety Report 5885166-9 (Version None)
Quarter: 2008Q3

REPORT INFORMATION
  Report Type: 
  Country: None (occurrence: None)
  Receive Date: 20080916
  Receipt Date: 20080912
  Transmission Date: 20090109
  Serious: Yes (Hospitalization, Other)
  Sender: FDA-Public Use
  Company Number: GB-RB-004013-08

PATIENT
  Age: 37 Year
  Sex: Female

DRUGS (1)
  1. SUBUTEX [Suspect]
     Indication: SUBSTANCE ABUSE
     Dosage: 1 DOSAGE FORM
     Route: 065

REACTIONS (4)
  - ATRIOVENTRICULAR BLOCK [None]
  - BLOOD PRESSURE INCREASED [None]
  - HEART RATE DECREASED [None]
  - WITHDRAWAL SYNDROME [None]
